FAERS Safety Report 24103810 (Version 1)
Quarter: 2024Q3

REPORT INFORMATION
  Report Type: Spontaneous
  Country: JP (occurrence: JP)
  Receive Date: 20240717
  Receipt Date: 20240717
  Transmission Date: 20241017
  Serious: Yes (Other)
  Sender: ACCORD
  Company Number: JP-MLMSERVICE-20240628-PI115518-00137-1

PATIENT
  Age: 6 Decade
  Sex: Female

DRUGS (1)
  1. ESOMEPRAZOLE [Suspect]
     Active Substance: ESOMEPRAZOLE
     Indication: Gastrointestinal erosion
     Dates: start: 201212, end: 201605

REACTIONS (3)
  - Blood gastrin increased [Recovered/Resolved]
  - Condition aggravated [Recovering/Resolving]
  - Gastric polyps [Recovering/Resolving]

NARRATIVE: CASE EVENT DATE: 20160101
